FAERS Safety Report 14702809 (Version 2)
Quarter: 2018Q2

REPORT INFORMATION
  Report Type: Spontaneous
  Country: US (occurrence: US)
  Receive Date: 20180402
  Receipt Date: 20180528
  Transmission Date: 20180711
  Serious: Yes (Other)
  Sender: FDA-Public Use
  Company Number: US-SUN PHARMACEUTICAL INDUSTRIES LTD-2018US-168679

PATIENT
  Age: 60 Year
  Sex: Female

DRUGS (1)
  1. DOXORUBICIN [Suspect]
     Active Substance: DOXORUBICIN
     Indication: ENDOMETRIAL CANCER
     Dosage: 60 MG/M2, 3/WEEK
     Route: 065
     Dates: end: 201412

REACTIONS (2)
  - Neutropenia [Unknown]
  - Gastrointestinal disorder [Unknown]
